FAERS Safety Report 19953442 (Version 1)
Quarter: 2021Q4

REPORT INFORMATION
  Report Type: Spontaneous
  Country: US (occurrence: US)
  Receive Date: 20211013
  Receipt Date: 20211013
  Transmission Date: 20220303
  Serious: Yes (Other)
  Sender: FDA-Public Use
  Company Number: US-REGENERON PHARMACEUTICALS, INC.-2021-91835

PATIENT

DRUGS (4)
  1. EYLEA [Suspect]
     Active Substance: AFLIBERCEPT
     Indication: Macular oedema
     Dosage: EVERY 5 WEEKS
     Route: 031
     Dates: start: 20210316
  2. EYLEA [Suspect]
     Active Substance: AFLIBERCEPT
     Dosage: EVERY 5 WEEKS
     Route: 031
     Dates: start: 20210811, end: 20210811
  3. EYLEA [Suspect]
     Active Substance: AFLIBERCEPT
     Dosage: EVERY 5 WEEKS
     Route: 031
     Dates: start: 20210630, end: 20210630
  4. EYLEA [Suspect]
     Active Substance: AFLIBERCEPT
     Dosage: EVERY 5 WEEKS
     Route: 031
     Dates: start: 20210923, end: 20210923

REACTIONS (1)
  - Back disorder [Unknown]
